FAERS Safety Report 4957696-5 (Version None)
Quarter: 2006Q1

REPORT INFORMATION
  Report Type: 
  Country: None (occurrence: None)
  Receive Date: 20060330
  Receipt Date: 20060323
  Transmission Date: 20060701
  Serious: Yes (Other)
  Sender: FDA-Public Use
  Company Number: DE-JNJFOC-20060204307

PATIENT
  Age: 52 Year
  Sex: Male
  Weight: 99 kg

DRUGS (7)
  1. INFLIXIMAB [Suspect]
     Route: 042
  2. INFLIXIMAB [Suspect]
     Route: 042
  3. INFLIXIMAB [Suspect]
     Route: 042
  4. INFLIXIMAB [Suspect]
     Route: 042
  5. GLUCOPHAG [Concomitant]
     Indication: DIABETES MELLITUS
  6. GLIBENCLAMID [Concomitant]
     Indication: DIABETES MELLITUS
  7. BLOPRESS [Concomitant]
     Indication: HYPERTENSION

REACTIONS (3)
  - HEPATIC ENZYME INCREASED [None]
  - HEPATIC STEATOSIS [None]
  - SPLENOMEGALY [None]
